FAERS Safety Report 4868097-2 (Version None)
Quarter: 2005Q4

REPORT INFORMATION
  Report Type: 
  Country: None (occurrence: None)
  Receive Date: 20051229
  Receipt Date: 20051226
  Transmission Date: 20060501
  Serious: Yes (Hospitalization, Other)
  Sender: FDA-Public Use
  Company Number: PHRM2005FR03365

PATIENT
  Age: 45 Year
  Sex: Male

DRUGS (1)
  1. LEPONEX [Suspect]
     Indication: SCHIZOPHRENIA
     Route: 048
     Dates: end: 19980101

REACTIONS (1)
  - PNEUMONIA PNEUMOCOCCAL [None]
